FAERS Safety Report 24245604 (Version 6)
Quarter: 2024Q4

REPORT INFORMATION
  Report Type: Spontaneous
  Country: JP (occurrence: JP)
  Receive Date: 20240824
  Receipt Date: 20241219
  Transmission Date: 20250114
  Serious: Yes (Death, Other)
  Sender: GENMAB
  Company Number: JP-GENMAB-2024-03049

PATIENT
  Age: 60 Year
  Sex: Female

DRUGS (14)
  1. EPKINLY [Suspect]
     Active Substance: EPCORITAMAB-BYSP
     Indication: Diffuse large B-cell lymphoma
     Dosage: 0.16 MILLIGRAM, SINGLE
     Route: 058
     Dates: start: 20240701, end: 20240701
  2. EPKINLY [Suspect]
     Active Substance: EPCORITAMAB-BYSP
     Dosage: 0.8 MILLIGRAM, SINGLE
     Route: 058
     Dates: start: 20240708, end: 20240708
  3. EPKINLY [Suspect]
     Active Substance: EPCORITAMAB-BYSP
     Dosage: 48 MILLIGRAM, UNTIL THE FIRST ADMINISTRATION IN CYCLE 2
     Route: 058
     Dates: start: 20240716, end: 20240729
  4. DEXAMETHASONE [Concomitant]
     Active Substance: DEXAMETHASONE
     Indication: Premedication
     Dosage: 16 MILLIGRAM, AT THE ADMINISTRATION OF EPKINLY(1-4 TIMES)
     Dates: start: 202407, end: 202407
  5. TACROLIMUS [Concomitant]
     Active Substance: TACROLIMUS
     Indication: Polymyositis
     Dosage: 1.5 MILLIGRAM
  6. TACROLIMUS [Concomitant]
     Active Substance: TACROLIMUS
     Indication: Interstitial lung disease
  7. AZATHIOPRINE [Concomitant]
     Active Substance: AZATHIOPRINE
     Indication: Polymyositis
     Dosage: 50 MILLIGRAM
  8. AZATHIOPRINE [Concomitant]
     Active Substance: AZATHIOPRINE
     Indication: Interstitial lung disease
  9. PREDNISOLONE [Concomitant]
     Active Substance: PREDNISOLONE
     Indication: Polymyositis
     Dosage: 6 MILLIGRAM
  10. PREDNISOLONE [Concomitant]
     Active Substance: PREDNISOLONE
     Indication: Interstitial lung disease
  11. VONOPRAZAN FUMARATE [Concomitant]
     Active Substance: VONOPRAZAN FUMARATE
     Dosage: 20 MILLIGRAM
  12. SULFAMETHOXAZOLE\TRIMETHOPRIM [Concomitant]
     Active Substance: SULFAMETHOXAZOLE\TRIMETHOPRIM
     Dosage: 0.3 GRAM
  13. ELDECALCITOL [Concomitant]
     Active Substance: ELDECALCITOL
     Dosage: 0.5 MICROGRAM
  14. SODIUM FERROUS CITRATE [Concomitant]
     Active Substance: SODIUM FERROUS CITRATE
     Dosage: 100 MILLIGRAM

REACTIONS (6)
  - Staphylococcal infection [Fatal]
  - Staphylococcal sepsis [Fatal]
  - Platelet count decreased [Unknown]
  - Tachycardia [Unknown]
  - Pyrexia [Unknown]
  - Pyrexia [Unknown]

NARRATIVE: CASE EVENT DATE: 20240701
